FAERS Safety Report 4383913-9 (Version None)
Quarter: 2004Q2

REPORT INFORMATION
  Report Type: 
  Country: None (occurrence: None)
  Receive Date: 20040621
  Receipt Date: 20040614
  Transmission Date: 20050107
  Serious: Yes (Hospitalization)
  Sender: FDA-Public Use
  Company Number: 2004US000680

PATIENT
  Age: 44 Year
  Sex: Male

DRUGS (4)
  1. PROGRAF [Suspect]
     Indication: PANCREAS TRANSPLANT
  2. PROGRAF [Suspect]
     Indication: RENAL TRANSPLANT
  3. MYCOPHENOLATE MOFETIL (MYCOPHENOLATE MOFETIL) [Concomitant]
  4. PREDNISONE (PREDNSIONE) [Concomitant]

REACTIONS (2)
  - ENCEPHALITIS [None]
  - WEST NILE VIRAL INFECTION [None]
